FAERS Safety Report 8275535-4 (Version None)
Quarter: 2012Q2

REPORT INFORMATION
  Report Type: 
  Country: None (occurrence: None)
  Receive Date: 20120412
  Receipt Date: 20120406
  Transmission Date: 20120825
  Serious: Yes (Hospitalization, Other)
  Sender: FDA-Public Use
  Company Number: US-AMGEN-USASP2012011935

PATIENT
  Age: 59 Year
  Sex: Female
  Weight: 78.912 kg

DRUGS (6)
  1. AGGRENOX [Concomitant]
     Indication: TRANSIENT ISCHAEMIC ATTACK
     Dosage: UNK UNK, BID
     Route: 048
     Dates: start: 20110512
  2. PROLIA [Suspect]
     Indication: OSTEOPOROSIS POSTMENOPAUSAL
     Dosage: 60 MG, Q6MO
     Route: 058
     Dates: start: 20120217
  3. MOBIC [Concomitant]
     Indication: OSTEOARTHRITIS
     Dosage: 15 MG, QD
     Route: 048
     Dates: start: 20111230
  4. SYNTHROID [Concomitant]
     Indication: HYPOTHYROIDISM
     Dosage: 150 MG, QD
     Route: 048
     Dates: start: 20111122
  5. IRON [Concomitant]
     Indication: ANAEMIA
     Dosage: 325 MG, QD
     Route: 048
     Dates: start: 20100820
  6. VITAMIN D [Concomitant]
     Dosage: 50000 IU, QWK
     Route: 048

REACTIONS (8)
  - TETANY [None]
  - HYPOAESTHESIA [None]
  - HYPOPHOSPHATAEMIA [None]
  - HYPOCALCAEMIA [None]
  - URINE CALCIUM DECREASED [None]
  - ELECTROCARDIOGRAM QT PROLONGED [None]
  - MUSCLE CONTRACTURE [None]
  - VISION BLURRED [None]
